FAERS Safety Report 13135777 (Version 2)
Quarter: 2017Q1

REPORT INFORMATION
  Report Type: Report from Study
  Country: US (occurrence: US)
  Receive Date: 20170120
  Receipt Date: 20170213
  Transmission Date: 20170428
  Serious: Yes (Hospitalization)
  Sender: FDA-Public Use
  Company Number: US-ACTELION-A-US2017-148589

PATIENT
  Age: 64 Year
  Sex: Female

DRUGS (24)
  1. PREDNISONE. [Concomitant]
     Active Substance: PREDNISONE
     Dosage: UNK
  2. OXYGEN. [Concomitant]
     Active Substance: OXYGEN
     Dosage: 14-16 L, UNK
  3. REVATIO [Concomitant]
     Active Substance: SILDENAFIL CITRATE
     Dosage: 20 MG, TID
  4. SPIRONOLACTONE. [Concomitant]
     Active Substance: SPIRONOLACTONE
  5. ASA [Concomitant]
     Active Substance: ASPIRIN
  6. FORMOTEROL W/MOMETASONE [Concomitant]
  7. METOLAZONE. [Concomitant]
     Active Substance: METOLAZONE
  8. NYSTATIN. [Concomitant]
     Active Substance: NYSTATIN
  9. PANTOPRAZOLE [Concomitant]
     Active Substance: PANTOPRAZOLE SODIUM
  10. GLIMEPIRID [Concomitant]
     Active Substance: GLIMEPIRIDE
  11. IPRATROPIUM [Concomitant]
     Active Substance: IPRATROPIUM
  12. N ACETYL CYSTEINE [Concomitant]
     Active Substance: ACETYLCYSTEINE
  13. CRESTOR [Concomitant]
     Active Substance: ROSUVASTATIN CALCIUM
  14. VICTOZA [Concomitant]
     Active Substance: LIRAGLUTIDE
     Dosage: 1.8 MG, QD
     Route: 058
  15. MAGNESIUM CHLORIDE. [Concomitant]
     Active Substance: MAGNESIUM CHLORIDE
  16. TRACLEER [Suspect]
     Active Substance: BOSENTAN
     Indication: PULMONARY ARTERIAL HYPERTENSION
     Dosage: 125 MG, UNK
     Route: 048
     Dates: start: 20070206
  17. ALBUTEROL. [Concomitant]
     Active Substance: ALBUTEROL
  18. CHOLECALCIFEROL [Concomitant]
     Active Substance: CHOLECALCIFEROL
  19. PLAVIX [Concomitant]
     Active Substance: CLOPIDOGREL BISULFATE
  20. KCL [Concomitant]
     Active Substance: POTASSIUM CHLORIDE
  21. CITALOPRAM [Concomitant]
     Active Substance: CITALOPRAM HYDROBROMIDE
  22. FLUTICASONE. [Concomitant]
     Active Substance: FLUTICASONE
     Route: 045
  23. LASIX [Concomitant]
     Active Substance: FUROSEMIDE
     Dosage: 80 MG, BID
  24. LOSARTAN. [Concomitant]
     Active Substance: LOSARTAN

REACTIONS (8)
  - Oedema peripheral [Unknown]
  - Chronic obstructive pulmonary disease [Recovering/Resolving]
  - Dyspnoea [Recovering/Resolving]
  - Coronary artery occlusion [Unknown]
  - Fluid retention [Unknown]
  - Bronchitis [Recovering/Resolving]
  - Coronary arterial stent insertion [Unknown]
  - Pulmonary hypertension [Unknown]

NARRATIVE: CASE EVENT DATE: 20170102
